FAERS Safety Report 23887879 (Version 1)
Quarter: 2024Q2

REPORT INFORMATION
  Report Type: Spontaneous
  Country: DE (occurrence: DE)
  Receive Date: 20240523
  Receipt Date: 20240523
  Transmission Date: 20240716
  Serious: Yes (Hospitalization)
  Sender: FDA-Public Use
  Company Number: DE-ROCHE-2996747

PATIENT
  Age: 55 Year
  Sex: Female

DRUGS (4)
  1. AMOXICILLIN [Suspect]
     Active Substance: AMOXICILLIN
     Indication: Product used for unknown indication
     Dosage: UNK
     Route: 065
  2. OCREVUS [Suspect]
     Active Substance: OCRELIZUMAB
     Indication: Multiple sclerosis
     Dosage: 600 MILLIGRAM (SUBSEQUENT DOSE FOR 227, 206 DAYS)
     Route: 042
     Dates: start: 20230216
  3. OCREVUS [Suspect]
     Active Substance: OCRELIZUMAB
     Route: 042
     Dates: start: 20211123
  4. LIORESAL [Concomitant]
     Active Substance: BACLOFEN
     Indication: Product used for unknown indication
     Dosage: 10 MILLIGRAM, ONCE A DAY
     Route: 065

REACTIONS (18)
  - Rheumatic disorder [Recovered/Resolved]
  - Pain [Not Recovered/Not Resolved]
  - Swelling [Not Recovered/Not Resolved]
  - Gingival swelling [Recovered/Resolved]
  - Nail bed inflammation [Recovered/Resolved]
  - Fatigue [Recovered/Resolved]
  - Hypoaesthesia [Recovering/Resolving]
  - Micturition urgency [Recovered/Resolved]
  - Tension [Recovered/Resolved]
  - Drug hypersensitivity [Recovered/Resolved]
  - Peripheral swelling [Recovering/Resolving]
  - Diarrhoea [Recovered/Resolved]
  - Tonsillitis [Recovered/Resolved]
  - Nasopharyngitis [Recovered/Resolved]
  - Headache [Recovered/Resolved]
  - Paraesthesia [Recovered/Resolved]
  - Muscle spasms [Recovered/Resolved]
  - Nail bed infection [Recovered/Resolved]

NARRATIVE: CASE EVENT DATE: 20211123
